FAERS Safety Report 8222655-6 (Version None)
Quarter: 2012Q1

REPORT INFORMATION
  Report Type: 
  Country: None (occurrence: None)
  Receive Date: 20120320
  Receipt Date: 20120314
  Transmission Date: 20120608
  Serious: Yes (Other)
  Sender: FDA-Public Use
  Company Number: DE-US-EMD SERONO, INC.-7119491

PATIENT
  Sex: Female

DRUGS (2)
  1. REBIF [Suspect]
     Indication: MULTIPLE SCLEROSIS
     Route: 058
  2. UNSPECIFIED CONTRACEPTIVE [Concomitant]
     Indication: CONTRACEPTION
     Route: 030

REACTIONS (2)
  - VAGINAL HAEMORRHAGE [None]
  - DIZZINESS [None]
